FAERS Safety Report 6283912-6 (Version None)
Quarter: 2009Q3

REPORT INFORMATION
  Report Type: 
  Country: None (occurrence: None)
  Receive Date: 20090722
  Receipt Date: 20090722
  Transmission Date: 20100115
  Serious: Yes (Life-Threatening, Other)
  Sender: FDA-Public Use
  Company Number: None

PATIENT
  Age: 41 Year
  Sex: Female
  Weight: 79.3795 kg

DRUGS (1)
  1. SEROQUEL [Suspect]
     Indication: AFFECTIVE DISORDER
     Dosage: 100MG 1 TIME PO 1 PILL ONLY TAKEN
     Route: 048
     Dates: start: 20090713, end: 20090713

REACTIONS (6)
  - ASTHENIA [None]
  - CARDIAC DISORDER [None]
  - HEART RATE INCREASED [None]
  - HEART RATE IRREGULAR [None]
  - NASAL CONGESTION [None]
  - SPEECH DISORDER [None]
